FAERS Safety Report 9112218 (Version 1)
Quarter: 2013Q1

REPORT INFORMATION
  Report Type: Spontaneous
  Country: US (occurrence: US)
  Receive Date: 20130219
  Receipt Date: 20130219
  Transmission Date: 20140127
  Serious: No
  Sender: FDA-Public Use
  Company Number: US-BRISTOL-MYERS SQUIBB COMPANY-17017419

PATIENT
  Age: 48 Year
  Sex: Female
  Weight: 109 kg

DRUGS (11)
  1. ABATACEPT SUBQ INJECTION 125MG/ML [Suspect]
     Dosage: LAST INJECTION:21SEP12
     Route: 058
  2. ALENDRONATE [Concomitant]
  3. PREDNISONE [Concomitant]
  4. VALIUM [Concomitant]
  5. FIORINAL [Concomitant]
  6. SPIRIVA [Concomitant]
  7. PROAIR HFA [Concomitant]
  8. FLONASE [Concomitant]
  9. ESTRADIOL [Concomitant]
  10. CALCIUM [Concomitant]
     Dosage: TABS, 1DF:UNITS NOS
  11. VITAMIN D2 [Concomitant]
     Dosage: 1DF:400UNITS, TABS

REACTIONS (3)
  - Injection site pain [Recovered/Resolved]
  - Headache [Recovered/Resolved]
  - Localised infection [Recovered/Resolved]
